FAERS Safety Report 4604096-3 (Version None)
Quarter: 2005Q1

REPORT INFORMATION
  Report Type: 
  Country: None (occurrence: None)
  Receive Date: 20050309
  Receipt Date: 20050309
  Transmission Date: 20050727
  Serious: Yes (Hospitalization)
  Sender: FDA-Public Use
  Company Number: None

PATIENT
  Age: 72 Year
  Sex: Female
  Weight: 90.7194 kg

DRUGS (1)
  1. MOBIC [Suspect]
     Indication: ARTHRALGIA
     Dosage: 1 DAILY      ORAL
     Route: 048
     Dates: start: 20050106, end: 20050110

REACTIONS (3)
  - BLOOD PRESSURE INCREASED [None]
  - HEART RATE INCREASED [None]
  - MYOCARDIAL INFARCTION [None]
